FAERS Safety Report 8883284 (Version 1)
Quarter: 2012Q4

REPORT INFORMATION
  Report Type: 
  Country: VE (occurrence: VE)
  Receive Date: 20121102
  Receipt Date: 20121102
  Transmission Date: 20130627
  Serious: Yes (Death, Hospitalization)
  Sender: FDA-Public Use
  Company Number: VE-ROCHE-1151579

PATIENT
  Age: 64 None
  Sex: Female

DRUGS (6)
  1. XOLAIR [Suspect]
     Indication: ASTHMA
     Route: 065
     Dates: start: 20100901, end: 20110901
  2. BUDESONIDE/FORMOTEROL [Suspect]
     Indication: ASTHMA
     Route: 065
     Dates: start: 201109
  3. ANAPRIL [Concomitant]
  4. FOLIC ACID [Concomitant]
  5. VITAMIN C [Concomitant]
  6. DESALEX [Concomitant]

REACTIONS (4)
  - Respiratory arrest [Fatal]
  - Chest pain [Unknown]
  - Asthma [Unknown]
  - Thrombocytopenia [Unknown]
